FAERS Safety Report 4280520-3 (Version None)
Quarter: 2004Q1

REPORT INFORMATION
  Report Type: 
  Country: None (occurrence: None)
  Receive Date: 20040128
  Receipt Date: 20040128
  Transmission Date: 20041129
  Serious: Yes (Other)
  Sender: FDA-Public Use
  Company Number: None

PATIENT
  Sex: Male
  Weight: 63.5036 kg

DRUGS (5)
  1. EFAVIRENZ 600 MG BRISTOL MEYERS SQUIBB [Suspect]
     Indication: HIV INFECTION
     Dosage: 600 MG QHS M-F ORAL
     Route: 048
     Dates: start: 20030605, end: 20031231
  2. LAMIVUDINE [Concomitant]
  3. TENOFOVIR [Concomitant]
  4. TRICOR [Concomitant]
  5. MULTIVITAMIN B12 [Concomitant]

REACTIONS (4)
  - DRUG INEFFECTIVE [None]
  - RASH PRURITIC [None]
  - SWELLING FACE [None]
  - URTICARIA [None]
